FAERS Safety Report 7798399-1 (Version None)
Quarter: 2011Q4

REPORT INFORMATION
  Report Type: 
  Country: None (occurrence: None)
  Receive Date: 20111005
  Receipt Date: 20110913
  Transmission Date: 20120403
  Serious: No
  Sender: FDA-Public Use
  Company Number: US-BAYER-2011-085722

PATIENT
  Age: 62 Year
  Sex: Male

DRUGS (3)
  1. STAXYN [Suspect]
     Dosage: 10 MG, UNK
     Route: 048
     Dates: start: 20110912
  2. ANTIHYPERTENSIVES [Concomitant]
  3. STAXYN [Suspect]
     Indication: ERECTILE DYSFUNCTION
     Dosage: 10 MG, UNK
     Route: 048
     Dates: start: 20110909

REACTIONS (1)
  - ERECTILE DYSFUNCTION [None]
